FAERS Safety Report 5112927-6 (Version None)
Quarter: 2006Q3

REPORT INFORMATION
  Report Type: 
  Country: None (occurrence: None)
  Receive Date: 20060921
  Receipt Date: 20060921
  Transmission Date: 20061208
  Serious: Yes (Hospitalization)
  Sender: FDA-Public Use
  Company Number: None

PATIENT
  Sex: Female
  Weight: 56.7 kg

DRUGS (6)
  1. DIGOXIN [Suspect]
     Indication: ATRIAL FIBRILLATION
     Dosage: 0.25 MG PO DAILY
     Route: 048
     Dates: start: 20060408, end: 20060608
  2. METOPROLOL SUCCINATE EXTENDED RELEASE [Concomitant]
  3. PROPAFENONE HCL [Concomitant]
  4. WARFARIN SODIUM [Concomitant]
  5. DYAZIDE [Concomitant]
  6. PREMPRO [Concomitant]

REACTIONS (8)
  - ANOREXIA [None]
  - BRADYCARDIA [None]
  - CARDIOACTIVE DRUG LEVEL INCREASED [None]
  - FEELING ABNORMAL [None]
  - MALAISE [None]
  - VISUAL DISTURBANCE [None]
  - VOMITING [None]
  - WEIGHT DECREASED [None]
